FAERS Safety Report 14243504 (Version 2)
Quarter: 2018Q1

REPORT INFORMATION
  Report Type: Report from Study
  Country: JP (occurrence: JP)
  Receive Date: 20171201
  Receipt Date: 20180309
  Transmission Date: 20180508
  Serious: Yes (Other)
  Sender: FDA-Public Use
  Company Number: JP-VIFOR (INTERNATIONAL) INC.-VIT-2017-02473

PATIENT
  Age: 54 Year
  Sex: Male
  Weight: 95.4 kg

DRUGS (25)
  1. VELPHORO [Suspect]
     Active Substance: FERRIC OXYHYDROXIDE
     Route: 048
     Dates: start: 20161129, end: 20170417
  2. CEFALEXIN [Concomitant]
     Active Substance: CEPHALEXIN
     Indication: ANGIOPLASTY
     Route: 048
     Dates: start: 20170110, end: 20170112
  3. CEFALEXIN [Concomitant]
     Active Substance: CEPHALEXIN
     Route: 048
     Dates: start: 20170404, end: 20170411
  4. PROMETHAZINE [Concomitant]
     Active Substance: PROMETHAZINE\PROMETHAZINE HYDROCHLORIDE
     Indication: PROPHYLAXIS
  5. FOSRENOL [Concomitant]
     Active Substance: LANTHANUM CARBONATE
     Route: 048
     Dates: start: 20170516
  6. VELPHORO [Suspect]
     Active Substance: FERRIC OXYHYDROXIDE
     Indication: HYPERPHOSPHATAEMIA
     Route: 048
     Dates: start: 20161011, end: 20161129
  7. HEPARIN [Concomitant]
     Active Substance: HEPARIN SODIUM
     Dosage: 8250 UNITS WHEN ON HD
  8. PRANLUKAST [Concomitant]
     Active Substance: PRANLUKAST
     Indication: RHINITIS ALLERGIC
     Route: 048
     Dates: start: 20171003, end: 20171009
  9. TEMOCAPRIL HYDROCHLORIDE [Concomitant]
     Active Substance: TEMOCAPRIL HYDROCHLORIDE
     Route: 048
  10. LOXOPROFEN TAPES [Concomitant]
     Indication: ARTHRALGIA
     Dosage: 1 PIECE
     Dates: start: 20161011, end: 20161031
  11. NESP INJECTION PLASTIC [Concomitant]
     Dates: start: 20170919
  12. LOXOPROFEN SODIUM [Concomitant]
     Active Substance: LOXOPROFEN SODIUM
     Indication: PROPHYLAXIS
  13. FOSRENOL [Concomitant]
     Active Substance: LANTHANUM CARBONATE
     Indication: HYPERPHOSPHATAEMIA
     Route: 048
     Dates: start: 20170418, end: 20170515
  14. AIMIX [Concomitant]
     Active Substance: AMLODIPINE BESYLATE\IRBESARTAN
     Route: 048
  15. OXAROL [Concomitant]
     Active Substance: MAXACALCITOL
     Dates: start: 20161004
  16. IRBETAN [Concomitant]
     Active Substance: IRBESARTAN
     Route: 048
     Dates: start: 20170430
  17. PROMETHAZINE [Concomitant]
     Active Substance: PROMETHAZINE\PROMETHAZINE HYDROCHLORIDE
     Indication: RHINITIS ALLERGIC
     Route: 048
     Dates: start: 20170331, end: 20170403
  18. DOXAZOSIN MESILATE [Concomitant]
     Active Substance: DOXAZOSIN MESYLATE
     Route: 048
     Dates: end: 20170622
  19. IOMERON [Concomitant]
     Active Substance: IOMEPROL
     Indication: ANGIOPLASTY
     Dates: start: 20170113, end: 20170113
  20. CONIEL [Concomitant]
     Active Substance: BENIDIPINE HYDROCHLORIDE
     Route: 048
     Dates: start: 20170430
  21. LOXOPROFEN SODIUM [Concomitant]
     Active Substance: LOXOPROFEN SODIUM
     Indication: HEADACHE
     Route: 048
     Dates: start: 20170331, end: 20170403
  22. OXAROL [Concomitant]
     Active Substance: MAXACALCITOL
     Dates: end: 20161001
  23. FUROSEMIDE. [Concomitant]
     Active Substance: FUROSEMIDE
     Route: 048
  24. COCARL [Concomitant]
     Active Substance: ACETAMINOPHEN
     Route: 048
     Dates: start: 20161031, end: 20161107
  25. NESP INJECTION PLASTIC [Concomitant]
     Dates: end: 20170822

REACTIONS (3)
  - Condition aggravated [Not Recovered/Not Resolved]
  - Serum ferritin increased [Recovering/Resolving]
  - Spinal column stenosis [Not Recovered/Not Resolved]

NARRATIVE: CASE EVENT DATE: 20170219
